FAERS Safety Report 12225890 (Version 1)
Quarter: 2016Q1

REPORT INFORMATION
  Report Type: Spontaneous
  Country: US (occurrence: US)
  Receive Date: 20160331
  Receipt Date: 20160331
  Transmission Date: 20160526
  Serious: Yes (Hospitalization)
  Sender: FDA-Public Use
  Company Number: US-BAYER-2016-058584

PATIENT
  Age: 20 Year
  Sex: Female

DRUGS (16)
  1. DILAUDID [Concomitant]
     Active Substance: HYDROMORPHONE HYDROCHLORIDE
  2. YAZ [Suspect]
     Active Substance: DROSPIRENONE\ETHINYL ESTRADIOL
     Indication: CONTRACEPTION
     Route: 048
  3. NICOTINE. [Concomitant]
     Active Substance: NICOTINE
     Dosage: 21 MG, UNK
     Route: 061
  4. LAMICTAL [Concomitant]
     Active Substance: LAMOTRIGINE
  5. RANITIDINE [Concomitant]
     Active Substance: RANITIDINE\RANITIDINE HYDROCHLORIDE
  6. VALIUM [Concomitant]
     Active Substance: DIAZEPAM
  7. OMEPRAZOLE. [Concomitant]
     Active Substance: OMEPRAZOLE
  8. AZITHROMYCIN ANHYDROUS. [Concomitant]
     Active Substance: AZITHROMYCIN ANHYDROUS
     Indication: DEEP VEIN THROMBOSIS
  9. VICODIN [Concomitant]
     Active Substance: ACETAMINOPHEN\HYDROCODONE BITARTRATE
  10. CALCIUM [Concomitant]
     Active Substance: CALCIUM
  11. TYLENOL [CHLORPHENAM MAL,DEXTROMET HBR,PARACET,PSEUDOEPH HCL] [Concomitant]
     Active Substance: ACETAMINOPHEN\CHLORPHENIRAMINE MALEATE\DEXTROMETHORPHAN HYDROBROMIDE\PSEUDOEPHEDRINE HYDROCHLORIDE
  12. AZITHROMYCIN ANHYDROUS. [Concomitant]
     Active Substance: AZITHROMYCIN ANHYDROUS
     Indication: PULMONARY EMBOLISM
  13. ALBUTEROL. [Concomitant]
     Active Substance: ALBUTEROL
  14. LEVAQUIN [Concomitant]
     Active Substance: LEVOFLOXACIN
  15. TOPAMAX [Concomitant]
     Active Substance: TOPIRAMATE
  16. ROBITUSSIN D [Concomitant]

REACTIONS (4)
  - Deep vein thrombosis [None]
  - Pulmonary embolism [None]
  - Pulmonary embolism [None]
  - Deep vein thrombosis [None]

NARRATIVE: CASE EVENT DATE: 200707
